FAERS Safety Report 6913386-0 (Version None)
Quarter: 2010Q3

REPORT INFORMATION
  Report Type: 
  Country: None (occurrence: None)
  Receive Date: 20100809
  Receipt Date: 20100730
  Transmission Date: 20110219
  Serious: Yes (Hospitalization)
  Sender: FDA-Public Use
  Company Number: US-BAYER-201029499NA

PATIENT
  Age: 79 Year
  Sex: Female
  Weight: 46 kg

DRUGS (12)
  1. CIPRO [Suspect]
     Indication: PRODUCT USED FOR UNKNOWN INDICATION
     Dosage: UNIT DOSE: 500 MG
     Route: 048
     Dates: start: 20100423
  2. CIMZIA [Suspect]
     Indication: CROHN'S DISEASE
     Dates: start: 20090914
  3. ACETAMINOPHEN [Concomitant]
     Indication: ANALGESIC THERAPY
     Route: 048
     Dates: start: 20100421
  4. FLAGYL [Concomitant]
     Indication: ABSCESS
     Dosage: UNIT DOSE: 500 MG
     Route: 048
     Dates: start: 20100423
  5. ADENOSINE [Concomitant]
     Indication: ARRHYTHMIA
     Route: 042
     Dates: start: 20091026
  6. ASPIRIN [Concomitant]
     Indication: PROPHYLAXIS
     Dosage: UNIT DOSE: 81 MG
     Route: 048
     Dates: start: 20090101
  7. ALENDRONATE SODIUM [Concomitant]
     Indication: OSTEOPOROSIS
     Route: 048
     Dates: start: 20091031
  8. CALCIUM CITRATE W/VITAMIN D [Concomitant]
     Indication: OSTEOPOROSIS
     Dosage: 500MG/200MG
     Route: 048
     Dates: start: 20060101
  9. CALCIUM CARBONATE W/VITAMIN D [Concomitant]
     Indication: PRODUCT USED FOR UNKNOWN INDICATION
     Route: 048
     Dates: start: 20100422
  10. COUMADIN [Concomitant]
     Indication: PRODUCT USED FOR UNKNOWN INDICATION
  11. CALCIUM D [Concomitant]
     Indication: PRODUCT USED FOR UNKNOWN INDICATION
     Route: 048
  12. OYSTER SHELL CALCIUM WITH VITAMIN D [Concomitant]
     Indication: PRODUCT USED FOR UNKNOWN INDICATION
     Dates: start: 20060101

REACTIONS (1)
  - ANAEMIA HAEMOLYTIC AUTOIMMUNE [None]
